FAERS Safety Report 26062922 (Version 1)
Quarter: 2025Q4

REPORT INFORMATION
  Report Type: Spontaneous
  Country: EU (occurrence: EU)
  Receive Date: 20251119
  Receipt Date: 20251119
  Transmission Date: 20260118
  Serious: Yes (Disabling, Other)
  Sender: MSN LABORATORIES PRIVATE LIMITED
  Company Number: EU-MLMSERVICE-20251028-PI688390-00255-5

PATIENT

DRUGS (10)
  1. PACLITAXEL [Suspect]
     Active Substance: PACLITAXEL
     Indication: Testicular seminoma (pure) stage II
     Dosage: TWO CYCLES OF PACLITAXEL 200 MG/M2
     Route: 065
  2. PACLITAXEL [Suspect]
     Active Substance: PACLITAXEL
     Indication: Extragonadal primary seminoma (pure)
  3. ETOPOSIDE [Suspect]
     Active Substance: ETOPOSIDE
     Indication: Extragonadal primary seminoma (pure) stage II
     Dosage: 400 MG/M2
     Route: 065
  4. ETOPOSIDE [Suspect]
     Active Substance: ETOPOSIDE
     Indication: Extragonadal primary seminoma (pure)
  5. CARBOPLATIN [Suspect]
     Active Substance: CARBOPLATIN
     Indication: Extragonadal primary seminoma (pure)
     Dosage: AUC 8, ON 3 CONSECUTIVE DAYS
     Route: 065
  6. CARBOPLATIN [Suspect]
     Active Substance: CARBOPLATIN
     Indication: Extragonadal primary seminoma (pure) stage II
  7. CYCLOPHOSPHAMIDE [Suspect]
     Active Substance: CYCLOPHOSPHAMIDE
     Indication: Extragonadal primary seminoma (pure) stage II
     Dosage: ON DAY 1, 2 AND 3
     Route: 065
  8. CYCLOPHOSPHAMIDE [Suspect]
     Active Substance: CYCLOPHOSPHAMIDE
     Indication: Extragonadal primary seminoma (pure) stage II
  9. MERCAPTOETHANESULFONIC ACID [Concomitant]
     Dosage: ON DAY 1, 2 AND 3 EVERY TWO WEEKS
     Route: 065
  10. MERCAPTOETHANESULFONIC ACID [Concomitant]

REACTIONS (4)
  - Pancytopenia [Recovering/Resolving]
  - Neuropathy peripheral [Unknown]
  - Ototoxicity [Unknown]
  - Febrile neutropenia [Recovered/Resolved]
